FAERS Safety Report 5199552-6 (Version None)
Quarter: 2006Q4

REPORT INFORMATION
  Report Type: 
  Country: None (occurrence: None)
  Receive Date: 20061229
  Receipt Date: 20061219
  Transmission Date: 20070319
  Serious: Yes (Hospitalization)
  Sender: FDA-Public Use
  Company Number: 2006RR-04833

PATIENT
  Age: 51 Year
  Sex: Male

DRUGS (5)
  1. FLUOXETINE [Suspect]
     Indication: DEPRESSION
     Dosage: SEE IMAGE
  2. BUPROPION HCL [Suspect]
     Indication: ASTHENIA
     Dosage: 150 MG, QD,
  3. BROMAZEPAM [Concomitant]
  4. ALPRAZOLAM [Concomitant]
  5. CLONAZEPAM [Concomitant]

REACTIONS (14)
  - APPETITE DISORDER [None]
  - ASTHENIA [None]
  - DELIRIUM [None]
  - DEPRESSED LEVEL OF CONSCIOUSNESS [None]
  - DEPRESSED MOOD [None]
  - DISORIENTATION [None]
  - DISTURBANCE IN ATTENTION [None]
  - DRUG INTERACTION [None]
  - ELECTROENCEPHALOGRAM ABNORMAL [None]
  - FATIGUE [None]
  - HALLUCINATION, AUDITORY [None]
  - HALLUCINATION, VISUAL [None]
  - INSOMNIA [None]
  - MEMORY IMPAIRMENT [None]
